FAERS Safety Report 7553953-7 (Version None)
Quarter: 2011Q2

REPORT INFORMATION
  Report Type: 
  Country: None (occurrence: None)
  Receive Date: 20110614
  Receipt Date: 20110614
  Transmission Date: 20111010
  Serious: Yes (Hospitalization)
  Sender: FDA-Public Use
  Company Number: None

PATIENT
  Age: 72 Year
  Sex: Male
  Weight: 54.1 kg

DRUGS (1)
  1. HEPARIN SODIUM 1,000 UNITS IN DEXTROSE 5% [Suspect]
     Indication: DEEP VEIN THROMBOSIS
     Dosage: IV
     Route: 042
     Dates: start: 20110605, end: 20110608

REACTIONS (3)
  - HUMERUS FRACTURE [None]
  - HAEMORRHAGE [None]
  - HIP FRACTURE [None]
